FAERS Safety Report 4828237-8 (Version None)
Quarter: 2005Q4

REPORT INFORMATION
  Report Type: 
  Country: None (occurrence: None)
  Receive Date: 20051115
  Receipt Date: 20050506
  Transmission Date: 20060501
  Serious: No
  Sender: FDA-Public Use
  Company Number: US-BRISTOL-MYERS SQUIBB COMPANY-12959953

PATIENT
  Sex: Male

DRUGS (1)
  1. SUSTIVA [Suspect]
     Indication: HIV INFECTION
     Dosage: 3 CAPSULES AT BEDTIME, CHANGED TO 600 MG TABLETS TO BE TAKEN 3 TIMES DAILY.
     Route: 048

REACTIONS (4)
  - AMNESIA [None]
  - FATIGUE [None]
  - MEDICATION ERROR [None]
  - WEIGHT DECREASED [None]
